FAERS Safety Report 5729833-6 (Version None)
Quarter: 2008Q2

REPORT INFORMATION
  Report Type: 
  Country: None (occurrence: None)
  Receive Date: 20080501
  Receipt Date: 20080421
  Transmission Date: 20081010
  Serious: Yes (Death, Hospitalization)
  Sender: FDA-Public Use
  Company Number: 000745

PATIENT
  Age: 58 Year
  Sex: Male

DRUGS (9)
  1. BUSULFEX [Suspect]
     Indication: STEM CELL TRANSPLANT
     Dosage: SEE IMAGE
     Dates: start: 20061105, end: 20061105
  2. BUSULFEX [Suspect]
     Indication: STEM CELL TRANSPLANT
     Dosage: SEE IMAGE
     Dates: start: 20061106, end: 20061106
  3. BUSULFEX [Suspect]
     Indication: STEM CELL TRANSPLANT
     Dosage: SEE IMAGE
     Dates: start: 20061107, end: 20061107
  4. FLUDARABINE PHOSPHATE [Suspect]
     Dosage: 27.9 ML
     Dates: start: 20061031, end: 20061105
  5. TACROLIMUS [Suspect]
  6. NEUPOGEN [Concomitant]
  7. VALPROATE SODIUM [Concomitant]
  8. METHOTREXATE [Concomitant]
  9. TACROLIMUS [Concomitant]

REACTIONS (24)
  - ACUTE MYELOID LEUKAEMIA RECURRENT [None]
  - ANAEMIA [None]
  - ANOREXIA [None]
  - BLAST CELL COUNT INCREASED [None]
  - BLOOD BILIRUBIN INCREASED [None]
  - CONDITION AGGRAVATED [None]
  - CYTOMEGALOVIRUS VIRAEMIA [None]
  - GRAFT COMPLICATION [None]
  - HAEMATEMESIS [None]
  - HAEMATURIA [None]
  - HAEMOLYSIS [None]
  - HAEMOPTYSIS [None]
  - HYPOKALAEMIA [None]
  - LEUKAEMIC INFILTRATION PULMONARY [None]
  - LIVER DISORDER [None]
  - MALAISE [None]
  - MALNUTRITION [None]
  - NAUSEA [None]
  - NEUTROPHIL COUNT DECREASED [None]
  - PLATELET COUNT DECREASED [None]
  - PO2 DECREASED [None]
  - PROTEIN TOTAL DECREASED [None]
  - STOMATITIS [None]
  - TUMOUR ASSOCIATED FEVER [None]
